FAERS Safety Report 16955176 (Version 1)
Quarter: 2019Q4

REPORT INFORMATION
  Report Type: Spontaneous
  Country: LB (occurrence: LB)
  Receive Date: 20191024
  Receipt Date: 20191024
  Transmission Date: 20200122
  Serious: Yes (Death, Other)
  Sender: FDA-Public Use
  Company Number: LB-APOTEX-2019AP023866

PATIENT
  Age: 65 Year
  Sex: Male

DRUGS (1)
  1. SEROXAT [Suspect]
     Active Substance: PAROXETINE HYDROCHLORIDE
     Indication: DEPRESSION
     Dosage: 20 MG, BID
     Route: 065
     Dates: start: 2018

REACTIONS (5)
  - Completed suicide [Fatal]
  - Therapy cessation [Unknown]
  - Depression [Unknown]
  - Hypertension [Unknown]
  - Alcohol use [Unknown]

NARRATIVE: CASE EVENT DATE: 20191011
